FAERS Safety Report 15807574 (Version 2)
Quarter: 2019Q1

REPORT INFORMATION
  Report Type: Report from Study
  Country: HN (occurrence: HN)
  Receive Date: 20190110
  Receipt Date: 20190123
  Transmission Date: 20190417
  Serious: Yes (Hospitalization, Other)
  Sender: FDA-Public Use
  Company Number: PHHY2019HN003148

PATIENT
  Age: 70 Year
  Sex: Female
  Weight: 63.49 kg

DRUGS (2)
  1. CO-DIOVAN [Suspect]
     Active Substance: HYDROCHLOROTHIAZIDE\VALSARTAN
     Indication: HYPERTENSION
     Dosage: (HYDROCHLOROTHIAZIDE 25 MG, VALSARTAN 320 MG)
     Route: 065
  2. CO-DIOVAN [Suspect]
     Active Substance: HYDROCHLOROTHIAZIDE\VALSARTAN
     Dosage: 0.5 DF (HYDROCHLOROTHIAZIDE 12.5 MG, VALSARTAN 160 MG), QD
     Route: 065

REACTIONS (6)
  - Malaise [Unknown]
  - Neoplasm malignant [Not Recovered/Not Resolved]
  - Haemoglobin decreased [Unknown]
  - Feeling abnormal [Unknown]
  - Wrong technique in product usage process [Unknown]
  - Mobility decreased [Unknown]

NARRATIVE: CASE EVENT DATE: 201811
